FAERS Safety Report 25885024 (Version 1)
Quarter: 2025Q4

REPORT INFORMATION
  Report Type: Spontaneous
  Country: US (occurrence: US)
  Receive Date: 20251006
  Receipt Date: 20251006
  Transmission Date: 20260118
  Serious: No
  Sender: RANBAXY
  Company Number: US-SUN PHARMACEUTICAL INDUSTRIES LTD-2025R1-498592

PATIENT
  Sex: Female

DRUGS (1)
  1. CEQUA [Suspect]
     Active Substance: CYCLOSPORINE
     Indication: Dry eye
     Dosage: 1 DROP IN BOTH EYES, 1DOSE/12HOUR
     Route: 047
     Dates: start: 2023

REACTIONS (2)
  - Expired product administered [Unknown]
  - Burning sensation [Unknown]
